FAERS Safety Report 23402073 (Version 1)
Quarter: 2024Q1

REPORT INFORMATION
  Report Type: Spontaneous
  Country: CN (occurrence: CN)
  Receive Date: 20240115
  Receipt Date: 20240115
  Transmission Date: 20240409
  Serious: Yes (Other)
  Sender: FDA-Public Use
  Company Number: CN-009507513-2401USA004663

PATIENT
  Age: 56 Year
  Sex: Female

DRUGS (2)
  1. KEYTRUDA [Suspect]
     Active Substance: PEMBROLIZUMAB
     Dosage: ROUTE OF ADMINISTERED: INFUSION
     Dates: start: 20231205, end: 20231205
  2. KEYTRUDA [Suspect]
     Active Substance: PEMBROLIZUMAB
     Dosage: ROUTE OF ADMINISTERED: INFUSION

REACTIONS (7)
  - Myocardial injury [Unknown]
  - Sinus arrhythmia [Unknown]
  - Increased need for sleep [Unknown]
  - Hypersomnia [Unknown]
  - Somnolence [Unknown]
  - Drug hypersensitivity [Unknown]
  - Incorrect product administration duration [Unknown]
